FAERS Safety Report 14822600 (Version 1)
Quarter: 2018Q2

REPORT INFORMATION
  Report Type: Spontaneous
  Country: US (occurrence: US)
  Receive Date: 20180427
  Receipt Date: 20180427
  Transmission Date: 20180711
  Serious: Yes (Hospitalization, Other)
  Sender: FDA-Public Use
  Company Number: US-LOREAL USA PRODUCTS, INC.-2018LOR00002

PATIENT
  Sex: Female
  Weight: 90.7 kg

DRUGS (12)
  1. LA ROCHE POSAY LAB. DERMATOLOGIQUE ANTHELIOS SX DAILY MOISTURIZING SUNSCREEN SPF 15 [Suspect]
     Active Substance: AVOBENZONE\ECAMSULE\OCTOCRYLENE
     Indication: PROPHYLAXIS
     Dosage: UNK, 1X/DAY
     Route: 061
     Dates: start: 2015
  2. FLUTICASONE. [Concomitant]
     Active Substance: FLUTICASONE
  3. UNSPECIFIED EYE LUBRICANT [Concomitant]
  4. UNSPECIFIED GENERIC CHOLESTEROL MEDICATION [Concomitant]
  5. UNSPECIFIED GENERIC ALLERGY MEDICATION [Concomitant]
  6. OMEPRAZOLE. [Concomitant]
     Active Substance: OMEPRAZOLE
  7. CYMBALTA [Concomitant]
     Active Substance: DULOXETINE HYDROCHLORIDE
     Dosage: UNK
     Dates: start: 201708
  8. LISINOPRIL. [Concomitant]
     Active Substance: LISINOPRIL
  9. ASPIRIN EC [Concomitant]
     Active Substance: ASPIRIN
  10. OXYCODONE [Suspect]
     Active Substance: OXYCODONE
     Indication: PAIN
     Dosage: UNK
  11. GABAPENTIN. [Concomitant]
     Active Substance: GABAPENTIN
  12. ROPINIROLE. [Concomitant]
     Active Substance: ROPINIROLE

REACTIONS (6)
  - Balance disorder [Unknown]
  - Knee arthroplasty [Recovered/Resolved]
  - Expired product administered [Not Recovered/Not Resolved]
  - Feeling abnormal [Unknown]
  - Muscle rupture [Not Recovered/Not Resolved]
  - Fall [Unknown]

NARRATIVE: CASE EVENT DATE: 2018
